FAERS Safety Report 10010599 (Version 4)
Quarter: 2015Q3

REPORT INFORMATION
  Report Type: Spontaneous
  Country: BR (occurrence: BR)
  Receive Date: 20140314
  Receipt Date: 20150820
  Transmission Date: 20151125
  Serious: Yes (Hospitalization, Disabling, Other)
  Sender: FDA-Public Use
  Company Number: BR-AMGEN-BRASP2014013395

PATIENT
  Age: 80 Year
  Sex: Female
  Weight: 63 kg

DRUGS (5)
  1. ROSUCOR [Concomitant]
     Active Substance: ROSUVASTATIN CALCIUM
     Indication: BLOOD CHOLESTEROL
     Dosage: UNK
     Dates: start: 2008
  2. SIMVASTATIN. [Concomitant]
     Active Substance: SIMVASTATIN
     Indication: BLOOD CHOLESTEROL
     Dosage: UNK
  3. CORUS /01121602/ [Suspect]
     Active Substance: LOSARTAN POTASSIUM
     Indication: HYPERTENSION
     Dosage: 100 MG, UNK
     Route: 065
     Dates: start: 2008
  4. ENBREL [Suspect]
     Active Substance: ETANERCEPT
     Indication: RHEUMATOID ARTHRITIS
     Dosage: 50 MG, ONCE WEEKLY
     Route: 058
     Dates: start: 20140105
  5. ATENOLOL. [Suspect]
     Active Substance: ATENOLOL
     Indication: HYPERTENSION
     Dosage: 100 MG, UNK
     Route: 048
     Dates: start: 2008

REACTIONS (32)
  - Yellow skin [Unknown]
  - Activities of daily living impaired [Unknown]
  - Limb discomfort [Not Recovered/Not Resolved]
  - Dry throat [Unknown]
  - Arthralgia [Not Recovered/Not Resolved]
  - Injection site pain [Unknown]
  - Drug ineffective [Recovered/Resolved]
  - Fall [Unknown]
  - Weight decreased [Not Recovered/Not Resolved]
  - Neck pain [Not Recovered/Not Resolved]
  - Head injury [Unknown]
  - Visual impairment [Unknown]
  - Injection site pruritus [Unknown]
  - Hallucination [Unknown]
  - Mobility decreased [Unknown]
  - Anaemia [Unknown]
  - Injection site erythema [Unknown]
  - Condition aggravated [Recovered/Resolved]
  - Deafness [Unknown]
  - Productive cough [Unknown]
  - Red blood cell sedimentation rate increased [Unknown]
  - Swelling [Recovered/Resolved]
  - Pain [Recovered/Resolved]
  - Thrombosis [Unknown]
  - Catarrh [Unknown]
  - Feeling abnormal [Unknown]
  - Injection site hypersensitivity [Unknown]
  - Rheumatoid arthritis [Unknown]
  - Joint swelling [Not Recovered/Not Resolved]
  - Hypertension [Unknown]
  - Dry mouth [Unknown]
  - Hypersensitivity [Recovered/Resolved]

NARRATIVE: CASE EVENT DATE: 20140213
